FAERS Safety Report 5070029-1 (Version None)
Quarter: 2006Q3

REPORT INFORMATION
  Report Type: 
  Country: None (occurrence: None)
  Receive Date: 20060731
  Receipt Date: 20060717
  Transmission Date: 20061208
  Serious: Yes (Other)
  Sender: FDA-Public Use
  Company Number: 2006089142

PATIENT
  Age: 5 Day
  Sex: Female

DRUGS (4)
  1. SILDENAFIL CITRATE [Suspect]
     Indication: VENTRICULAR HYPOPLASIA
     Dosage: 4 IN 1 D, ORAL
     Route: 048
     Dates: start: 20060116
  2. ASPIRIN [Concomitant]
  3. FUROSEMIDE [Concomitant]
  4. CAPOTEN [Concomitant]

REACTIONS (2)
  - NEONATAL DISORDER [None]
  - SURGERY [None]
